FAERS Safety Report 16661350 (Version 1)
Quarter: 2019Q3

REPORT INFORMATION
  Report Type: Spontaneous
  Country: CO (occurrence: CO)
  Receive Date: 20190619
  Receipt Date: 20190619
  Transmission Date: 20191004
  Serious: Yes (Hospitalization)
  Sender: FDA-Public Use
  Company Number: None

PATIENT
  Age: 85 Year
  Sex: Female
  Weight: 31.75 kg

DRUGS (1)
  1. INSULINA GLARGINA (INSULIN GLARGINE) [Suspect]
     Active Substance: INSULIN GLARGINE

REACTIONS (3)
  - Ill-defined disorder [None]
  - Motor dysfunction [None]
  - Aphasia [None]

NARRATIVE: CASE EVENT DATE: 20190618
